FAERS Safety Report 4504987-8 (Version None)
Quarter: 2004Q4

REPORT INFORMATION
  Report Type: 
  Country: None (occurrence: None)
  Receive Date: 20041015
  Receipt Date: 20040211
  Transmission Date: 20050328
  Serious: Yes (Other)
  Sender: FDA-Public Use
  Company Number: 2003121503

PATIENT
  Age: 40 Year
  Sex: Female

DRUGS (1)
  1. NEURONTIN [Suspect]
     Indication: CONVULSION
     Dosage: 400 MG (200 BID) ORAL
     Route: 048

REACTIONS (2)
  - CONVULSION [None]
  - DRUG LEVEL DECREASED [None]
